FAERS Safety Report 6287867-X (Version None)
Quarter: 2009Q3

REPORT INFORMATION
  Report Type: 
  Country: None (occurrence: None)
  Receive Date: 20090729
  Receipt Date: 20090721
  Transmission Date: 20100115
  Serious: Yes (Hospitalization)
  Sender: FDA-Public Use
  Company Number: US-ELI_LILLY_AND_COMPANY-US200907005552

PATIENT
  Age: 58 Year
  Sex: Female

DRUGS (2)
  1. BYETTA [Suspect]
     Indication: TYPE 2 DIABETES MELLITUS
     Dosage: 10 UG, UNK
     Dates: start: 20070101, end: 20090201
  2. METFORMIN [Concomitant]
     Dosage: 1000 MG, UNK

REACTIONS (2)
  - CHOLECYSTITIS [None]
  - PANCREATITIS HAEMORRHAGIC [None]
